FAERS Safety Report 6272110-8 (Version None)
Quarter: 2009Q3

REPORT INFORMATION
  Report Type: 
  Country: None (occurrence: None)
  Receive Date: 20090717
  Receipt Date: 20090708
  Transmission Date: 20100115
  Serious: Yes (Hospitalization)
  Sender: FDA-Public Use
  Company Number: B0584337A

PATIENT
  Sex: Female

DRUGS (4)
  1. CIBLOR [Suspect]
     Route: 065
     Dates: start: 20090413, end: 20090422
  2. NEXIUM [Concomitant]
     Dosage: 40MG PER DAY
  3. TRIAMTERENE AND HYDROCHLOROTHIAZIDE [Concomitant]
     Indication: HYPERTENSION
  4. CORDARONE [Concomitant]
     Dosage: 1TAB PER DAY

REACTIONS (3)
  - HAEMATURIA [None]
  - RENAL TUBULAR DISORDER [None]
  - VASCULAR PURPURA [None]
